FAERS Safety Report 12697926 (Version 1)
Quarter: 2016Q3

REPORT INFORMATION
  Report Type: Spontaneous
  Country: US (occurrence: None)
  Receive Date: 20160829
  Receipt Date: 20160829
  Transmission Date: 20161109
  Serious: No
  Sender: FDA-Public Use
  Company Number: None

PATIENT
  Age: 67 Year
  Sex: Male

DRUGS (1)
  1. REVLIMID [Suspect]
     Active Substance: LENALIDOMIDE
     Indication: PLASMA CELL MYELOMA
     Dosage: 10MG D1-21 Q28D ORAL
     Route: 048
     Dates: start: 20150831, end: 20160801

REACTIONS (2)
  - Rash [None]
  - Deep vein thrombosis [None]

NARRATIVE: CASE EVENT DATE: 20160626
